FAERS Safety Report 5950697-X (Version None)
Quarter: 2008Q4

REPORT INFORMATION
  Report Type: 
  Country: None (occurrence: None)
  Receive Date: 20081112
  Receipt Date: 20081030
  Transmission Date: 20090506
  Serious: Yes (Other)
  Sender: FDA-Public Use
  Company Number: JP-ROCHE-595901

PATIENT
  Age: 14 Year
  Sex: Female

DRUGS (7)
  1. DIAZEPAM [Suspect]
     Indication: INDUCTION OF ANAESTHESIA
     Route: 048
  2. MIDAZOLAM HCL [Suspect]
     Indication: INDUCTION OF ANAESTHESIA
     Dosage: ROUTE REPORTED AS: IJ
     Route: 050
  3. MIDAZOLAM HCL [Suspect]
     Dosage: ROUTE REPORTED AS: IJ INDICATION REPORTED AS SEDATION
     Route: 050
  4. FENTANYL [Concomitant]
  5. SEVOFLURANE [Concomitant]
  6. PROSTAGLANDIN E1 [Concomitant]
  7. DROPERIDOL [Concomitant]

REACTIONS (2)
  - HYPOVENTILATION [None]
  - TRACHEOMALACIA [None]
